FAERS Safety Report 16135370 (Version 1)
Quarter: 2019Q1

REPORT INFORMATION
  Report Type: Spontaneous
  Country: US (occurrence: US)
  Receive Date: 20190331
  Receipt Date: 20190331
  Transmission Date: 20190418
  Serious: No
  Sender: FDA-Public Use
  Company Number: US-TEVA-2019-US-1021380

PATIENT
  Sex: Female

DRUGS (1)
  1. TEVA ESTRADIOL VAGINAL INSERTS [Suspect]
     Active Substance: ESTRADIOL
     Route: 065

REACTIONS (4)
  - Device malfunction [None]
  - Pain [Unknown]
  - Pruritus [Unknown]
  - Device issue [Unknown]
